FAERS Safety Report 8881160 (Version 1)
Quarter: 2012Q4

REPORT INFORMATION
  Report Type: Report from Study
  Country: US (occurrence: US)
  Receive Date: 20121031
  Receipt Date: 20121031
  Transmission Date: 20130627
  Serious: Yes (Other)
  Sender: FDA-Public Use
  Company Number: US-ABBOTT-12P-163-0999126-00

PATIENT
  Age: 67 Year
  Sex: Male

DRUGS (14)
  1. DEPAKOTE [Suspect]
     Indication: CONVULSION
     Dosage: In the morning and at night
  2. DEPAKOTE [Suspect]
     Indication: MIGRAINE
  3. HUMIRA [Suspect]
     Indication: RHEUMATOID ARTHRITIS
     Dates: start: 20120903
  4. LEVOTHYROXINE [Concomitant]
     Indication: HYPOTHYROIDISM
  5. AMLODIPINE [Concomitant]
     Indication: BLOOD PRESSURE
  6. LOSARTAN [Concomitant]
     Indication: HYPERTENSION
  7. VITAMIN D3 [Concomitant]
     Indication: IMMUNE SYSTEM DISORDER
  8. B COMPLEX VITAMIN [Concomitant]
     Indication: PRODUCT USED FOR UNKNOWN INDICATION
  9. MULTIVITAMIN [Concomitant]
     Indication: PRODUCT USED FOR UNKNOWN INDICATION
  10. CITALOPRAM [Concomitant]
     Indication: DEPRESSION
  11. ASPIRIN [Concomitant]
     Indication: PRODUCT USED FOR UNKNOWN INDICATION
  12. TRAMADOL [Concomitant]
     Indication: PAIN
     Dosage: 1 or 2 per day
  13. TRAMADOL [Concomitant]
     Indication: HEADACHE
  14. TYLENOL [Concomitant]
     Indication: PRODUCT USED FOR UNKNOWN INDICATION
     Dosage: 1 or 2 per day

REACTIONS (12)
  - Cataract operation [Unknown]
  - Drug ineffective [Unknown]
  - Mobility decreased [Unknown]
  - Dysgeusia [Unknown]
  - Mobility decreased [Unknown]
  - Rheumatoid arthritis [Unknown]
  - Eye haemorrhage [Unknown]
  - Drug level below therapeutic [Unknown]
  - Blood pressure increased [Unknown]
  - Nausea [Unknown]
  - Nausea [Unknown]
  - Headache [Unknown]
